FAERS Safety Report 14838910 (Version 3)
Quarter: 2018Q2

REPORT INFORMATION
  Report Type: Spontaneous
  Country: TN (occurrence: TN)
  Receive Date: 20180502
  Receipt Date: 20180607
  Transmission Date: 20180711
  Serious: Yes (Disabling, Other)
  Sender: FDA-Public Use
  Company Number: TN-REGENERON PHARMACEUTICALS, INC.-2018-19780

PATIENT

DRUGS (3)
  1. EYLEA [Suspect]
     Active Substance: AFLIBERCEPT
     Indication: NEOVASCULAR AGE-RELATED MACULAR DEGENERATION
     Dosage: 2 MG, ONCE; RECEIVED ONLY ONE EYLEA DOSE, OS
     Route: 031
     Dates: start: 20180304, end: 20180304
  2. AVASTIN [Concomitant]
     Active Substance: BEVACIZUMAB
     Indication: PRODUCT USED FOR UNKNOWN INDICATION
     Dosage: UNK
     Dates: start: 20180205, end: 20180205
  3. BETADINE [Concomitant]
     Active Substance: POVIDONE-IODINE
     Indication: INFECTION PROPHYLAXIS

REACTIONS (3)
  - Multiple use of single-use product [Unknown]
  - Blindness unilateral [Unknown]
  - Vitritis [Recovered/Resolved]

NARRATIVE: CASE EVENT DATE: 20180306
